FAERS Safety Report 7482569-6 (Version None)
Quarter: 2011Q2

REPORT INFORMATION
  Report Type: 
  Country: None (occurrence: None)
  Receive Date: 20110516
  Receipt Date: 20110502
  Transmission Date: 20111010
  Serious: Yes (Other)
  Sender: FDA-Public Use
  Company Number: US-UCBSA-032170

PATIENT
  Age: 35 Year
  Sex: Female
  Weight: 55 kg

DRUGS (12)
  1. VIMPAT [Suspect]
     Route: 048
     Dates: start: 20110404
  2. PHENOBARBITAL TAB [Concomitant]
     Indication: EPILEPSY
     Dates: start: 20100401, end: 20100101
  3. CYCLOBENZAPRINE [Concomitant]
     Indication: PAIN
     Dates: start: 20110311
  4. DEPO-PROVERA [Concomitant]
     Indication: HORMONE LEVEL ABNORMAL
     Dosage: MONTHLY
     Dates: start: 20100625
  5. IBUPROFEN [Concomitant]
     Indication: PAIN
     Dates: start: 20110328
  6. PHENOBARBITAL TAB [Concomitant]
     Dates: start: 20101017
  7. GABAPENTIN [Concomitant]
     Indication: EPILEPSY
     Route: 048
     Dates: start: 20110330
  8. TOPAMAX [Concomitant]
     Dates: start: 20101210
  9. TOPAMAX [Concomitant]
     Indication: EPILEPSY
     Dates: start: 20070501
  10. PHENOBARBITAL TAB [Concomitant]
     Dates: start: 20100501, end: 20100101
  11. SERTRALINE HYDROCHLORIDE [Concomitant]
  12. VIMPAT [Suspect]
     Route: 048
     Dates: end: 20110401

REACTIONS (4)
  - DYSPNOEA [None]
  - CHEST DISCOMFORT [None]
  - ABNORMAL SENSATION IN EYE [None]
  - PALPITATIONS [None]
